FAERS Safety Report 8052695-1 (Version None)
Quarter: 2012Q1

REPORT INFORMATION
  Report Type: 
  Country: None (occurrence: None)
  Receive Date: 20120118
  Receipt Date: 20120118
  Transmission Date: 20120608
  Serious: No
  Sender: FDA-Public Use
  Company Number: None

PATIENT
  Age: 32 Year
  Sex: Female
  Weight: 68.038 kg

DRUGS (2)
  1. LEVAQUIN [Concomitant]
     Dosage: 14
     Route: 048
     Dates: start: 20100310, end: 20100324
  2. LEVAQUIN [Suspect]
     Indication: RHINITIS
     Dosage: 21
     Route: 048
     Dates: start: 20100327, end: 20100417

REACTIONS (34)
  - BLOOD TESTOSTERONE INCREASED [None]
  - ACNE [None]
  - FEELING COLD [None]
  - DEPRESSED MOOD [None]
  - ARTHRALGIA [None]
  - OVARIAN CYST [None]
  - WEIGHT INCREASED [None]
  - DENTAL PLAQUE [None]
  - SYSTEMIC CANDIDA [None]
  - IMPAIRED HEALING [None]
  - IRIS CYST [None]
  - SWELLING [None]
  - GINGIVAL PAIN [None]
  - MENSTRUATION IRREGULAR [None]
  - DRY SKIN [None]
  - MEMORY IMPAIRMENT [None]
  - BURSITIS [None]
  - UTERINE LEIOMYOMA [None]
  - EYE IRRITATION [None]
  - HYPOGLYCAEMIA [None]
  - CONSTIPATION [None]
  - ANXIETY [None]
  - HYPOTENSION [None]
  - ANGER [None]
  - RETINAL DISORDER [None]
  - GOITRE [None]
  - SPLENIC ARTERY ANEURYSM [None]
  - HYPERSOMNIA [None]
  - DISTURBANCE IN ATTENTION [None]
  - PERSONALITY CHANGE [None]
  - RICKETS [None]
  - HAIR COLOUR CHANGES [None]
  - TINNITUS [None]
  - FEELING ABNORMAL [None]
